FAERS Safety Report 10469995 (Version 1)
Quarter: 2014Q3

REPORT INFORMATION
  Report Type: Spontaneous
  Country: US (occurrence: US)
  Receive Date: 20140923
  Receipt Date: 20140923
  Transmission Date: 20150326
  Serious: No
  Sender: FDA-Public Use
  Company Number: US-SHIONOGI, INC-2014000723

PATIENT
  Age: 50 Year
  Sex: Female
  Weight: 122.45 kg

DRUGS (2)
  1. OSPHENA [Suspect]
     Active Substance: OSPEMIFENE
     Indication: DYSPAREUNIA
     Dosage: 60 MG, QD
     Route: 048
     Dates: start: 20140722, end: 20140725
  2. OSPHENA [Suspect]
     Active Substance: OSPEMIFENE
     Indication: VULVOVAGINAL DRYNESS

REACTIONS (2)
  - Vulvovaginal discomfort [Recovering/Resolving]
  - Vaginal oedema [Recovering/Resolving]

NARRATIVE: CASE EVENT DATE: 20140725
